FAERS Safety Report 9038101 (Version 1)
Quarter: 2013Q1

REPORT INFORMATION
  Report Type: Report from Study
  Country: US (occurrence: US)
  Receive Date: 20130129
  Receipt Date: 20130129
  Transmission Date: 20140127
  Serious: No
  Sender: FDA-Public Use
  Company Number: US-ABBOTT-12P-163-0980300-00

PATIENT
  Sex: Female
  Weight: 70.37 kg

DRUGS (3)
  1. LEUPROLIDE ACETATE DEPOT [Suspect]
     Indication: ENDOMETRIOSIS
     Dates: start: 20120710, end: 201209
  2. SYNTHROID [Concomitant]
     Indication: HYPOTHYROIDISM
  3. MULTIVITAMIN [Concomitant]
     Indication: ROUTINE HEALTH MAINTENANCE

REACTIONS (4)
  - Hot flush [Not Recovered/Not Resolved]
  - Mood swings [Not Recovered/Not Resolved]
  - Depressed mood [Not Recovered/Not Resolved]
  - Feeling abnormal [Not Recovered/Not Resolved]
